FAERS Safety Report 9120123 (Version 8)
Quarter: 2016Q1

REPORT INFORMATION
  Report Type: Spontaneous
  Country: US (occurrence: US)
  Receive Date: 20130226
  Receipt Date: 20160127
  Transmission Date: 20160526
  Serious: Yes (Hospitalization, Other)
  Sender: FDA-Public Use
  Company Number: US-009507513-1302USA011685

PATIENT
  Sex: Female

DRUGS (5)
  1. ALENDRONATE SODIUM. [Suspect]
     Active Substance: ALENDRONATE SODIUM
     Indication: POSTMENOPAUSE
  2. FOSAMAX [Suspect]
     Active Substance: ALENDRONATE SODIUM
     Indication: OSTEOPOROSIS
     Dosage: 10 MG, UNK
     Route: 048
     Dates: start: 20000419, end: 20021210
  3. FOSAMAX [Suspect]
     Active Substance: ALENDRONATE SODIUM
     Dosage: 70 MG, UNK
     Route: 048
     Dates: end: 20021210
  4. FOSAMAX [Suspect]
     Active Substance: ALENDRONATE SODIUM
     Indication: POSTMENOPAUSE
     Dosage: 70 MG, QW
     Route: 048
     Dates: start: 20060510, end: 20120627
  5. ALENDRONATE SODIUM. [Suspect]
     Active Substance: ALENDRONATE SODIUM
     Indication: OSTEOPOROSIS
     Dosage: 70 MG, UNK
     Route: 048
     Dates: start: 20060510, end: 20120627

REACTIONS (29)
  - Appendicectomy [Unknown]
  - Femur fracture [Recovered/Resolved]
  - Off label use [Unknown]
  - Faecaloma [Unknown]
  - Fatigue [Unknown]
  - Stress [Unknown]
  - Blood cholesterol increased [Unknown]
  - Enchondromatosis [Unknown]
  - Fall [Unknown]
  - Osteoarthritis [Unknown]
  - Bone pain [Unknown]
  - Alopecia [Unknown]
  - Raynaud^s phenomenon [Unknown]
  - Urinary incontinence [Unknown]
  - Nervous system disorder [Unknown]
  - Impaired healing [Unknown]
  - Muscle spasms [Unknown]
  - Intramedullary rod insertion [Unknown]
  - Femur fracture [Recovering/Resolving]
  - Depression [Not Recovered/Not Resolved]
  - Anxiety [Unknown]
  - Bone disorder [Unknown]
  - Adverse event [Unknown]
  - Femur fracture [Unknown]
  - Low turnover osteopathy [Unknown]
  - Hypothyroidism [Unknown]
  - Mammogram abnormal [Unknown]
  - Tonsillectomy [Unknown]
  - Large intestine polyp [Unknown]

NARRATIVE: CASE EVENT DATE: 20000419
